FAERS Safety Report 25938314 (Version 1)
Quarter: 2025Q4

REPORT INFORMATION
  Report Type: Spontaneous
  Country: JP (occurrence: JP)
  Receive Date: 20251018
  Receipt Date: 20251018
  Transmission Date: 20260119
  Serious: Yes (Other)
  Sender: CSL BEHRING
  Company Number: JP-BEH-2025216467

PATIENT
  Age: 3 Decade
  Sex: Female

DRUGS (22)
  1. BERINERT [Suspect]
     Active Substance: HUMAN C1-ESTERASE INHIBITOR
     Indication: Hereditary angioedema
     Dosage: 1000 IU / 2 VIAL
     Route: 042
     Dates: start: 20250716, end: 20250716
  2. BERINERT [Suspect]
     Active Substance: HUMAN C1-ESTERASE INHIBITOR
     Indication: Hereditary angioedema
     Dosage: 1000 IU / 2 VIAL
     Route: 042
     Dates: start: 20250716, end: 20250716
  3. BERINERT [Suspect]
     Active Substance: HUMAN C1-ESTERASE INHIBITOR
     Indication: Prophylaxis
     Dosage: 1500 IU
     Route: 042
  4. BERINERT [Suspect]
     Active Substance: HUMAN C1-ESTERASE INHIBITOR
     Indication: Prophylaxis
     Dosage: 1500 IU
     Route: 042
  5. BERINERT [Suspect]
     Active Substance: HUMAN C1-ESTERASE INHIBITOR
     Indication: Delivery
     Dosage: 1 VIAL
     Route: 042
     Dates: start: 20250716, end: 20250716
  6. BERINERT [Suspect]
     Active Substance: HUMAN C1-ESTERASE INHIBITOR
     Indication: Delivery
     Dosage: 1 VIAL
     Route: 042
     Dates: start: 20250716, end: 20250716
  7. BERINERT [Suspect]
     Active Substance: HUMAN C1-ESTERASE INHIBITOR
     Indication: Laryngeal oedema
     Dosage: 1 VIAL
     Route: 042
     Dates: start: 20250716, end: 20250716
  8. BERINERT [Suspect]
     Active Substance: HUMAN C1-ESTERASE INHIBITOR
     Indication: Laryngeal oedema
     Dosage: 1 VIAL
     Route: 042
     Dates: start: 20250716, end: 20250716
  9. BERINERT [Suspect]
     Active Substance: HUMAN C1-ESTERASE INHIBITOR
     Indication: Nasal congestion
     Dosage: 1 VIAL
     Route: 042
     Dates: start: 20250717, end: 20250717
  10. BERINERT [Suspect]
     Active Substance: HUMAN C1-ESTERASE INHIBITOR
     Indication: Nasal congestion
     Dosage: 1 VIAL
     Route: 042
     Dates: start: 20250717, end: 20250717
  11. BERINERT [Suspect]
     Active Substance: HUMAN C1-ESTERASE INHIBITOR
     Dosage: 1 VIAL
     Route: 042
     Dates: start: 20250717, end: 20250717
  12. BERINERT [Suspect]
     Active Substance: HUMAN C1-ESTERASE INHIBITOR
     Dosage: 1 VIAL
     Route: 042
     Dates: start: 20250717, end: 20250717
  13. BERINERT [Suspect]
     Active Substance: HUMAN C1-ESTERASE INHIBITOR
     Dosage: 1 VIAL
     Route: 042
     Dates: start: 20250717, end: 20250717
  14. BERINERT [Suspect]
     Active Substance: HUMAN C1-ESTERASE INHIBITOR
     Dosage: 1 VIAL
     Route: 042
     Dates: start: 20250717, end: 20250717
  15. BERINERT [Suspect]
     Active Substance: HUMAN C1-ESTERASE INHIBITOR
     Dosage: 1 VIAL
     Route: 042
     Dates: start: 20250717, end: 20250717
  16. BERINERT [Suspect]
     Active Substance: HUMAN C1-ESTERASE INHIBITOR
     Dosage: 1 VIAL
     Route: 042
     Dates: start: 20250717, end: 20250717
  17. BERINERT [Suspect]
     Active Substance: HUMAN C1-ESTERASE INHIBITOR
     Dosage: 1 VIAL
     Route: 042
     Dates: start: 20250717, end: 20250717
  18. BERINERT [Suspect]
     Active Substance: HUMAN C1-ESTERASE INHIBITOR
     Dosage: 1 VIAL
     Route: 042
     Dates: start: 20250717, end: 20250717
  19. BERINERT [Suspect]
     Active Substance: HUMAN C1-ESTERASE INHIBITOR
     Dosage: 1 VIAL
     Route: 042
     Dates: start: 20250717, end: 20250717
  20. BERINERT [Suspect]
     Active Substance: HUMAN C1-ESTERASE INHIBITOR
     Dosage: 1 VIAL
     Route: 042
     Dates: start: 20250717, end: 20250717
  21. BERINERT [Suspect]
     Active Substance: HUMAN C1-ESTERASE INHIBITOR
     Indication: Hereditary angioedema
     Dosage: 2 V, BIW
     Route: 065
  22. BERINERT [Suspect]
     Active Substance: HUMAN C1-ESTERASE INHIBITOR
     Indication: Prophylaxis

REACTIONS (18)
  - Hereditary angioedema [Recovered/Resolved]
  - Nasal congestion [Recovered/Resolved]
  - Hereditary angioedema [Recovered/Resolved]
  - Nasal congestion [Recovered/Resolved]
  - Hereditary angioedema [Recovered/Resolved]
  - Nasal congestion [Recovered/Resolved]
  - Hereditary angioedema [Recovered/Resolved]
  - Nasal congestion [Recovered/Resolved]
  - Hereditary angioedema [Recovered/Resolved]
  - Nasal congestion [Recovered/Resolved]
  - Hereditary angioedema [Recovered/Resolved]
  - Nasal congestion [Recovered/Resolved]
  - Hereditary angioedema [Recovered/Resolved]
  - Nasal congestion [Recovered/Resolved]
  - Hereditary angioedema [Recovered/Resolved]
  - Nasal congestion [Recovered/Resolved]
  - Maternal exposure during pregnancy [Unknown]
  - Overdose [Unknown]

NARRATIVE: CASE EVENT DATE: 20250716
